FAERS Safety Report 4445842-1 (Version None)
Quarter: 2004Q3

REPORT INFORMATION
  Report Type: 
  Country: None (occurrence: None)
  Receive Date: 20040908
  Receipt Date: 20040908
  Transmission Date: 20050211
  Serious: Yes (Hospitalization)
  Sender: FDA-Public Use
  Company Number: None

PATIENT
  Age: 76 Year
  Sex: Male

DRUGS (6)
  1. FOSINOPRIL SODIUM [Suspect]
     Indication: HYPERTENSION
     Dosage: 80 MG QD
     Dates: start: 20030101
  2. KCL TAB [Suspect]
     Indication: BLOOD POTASSIUM
     Dosage: 16 MEQ BID
     Dates: start: 20040319
  3. FES04 [Concomitant]
  4. FUROSEMIDE [Concomitant]
  5. TERAZOSIN HCL [Concomitant]
  6. ETODOLAC [Concomitant]

REACTIONS (1)
  - HYPERKALAEMIA [None]
